FAERS Safety Report 10265768 (Version 1)
Quarter: 2014Q2

REPORT INFORMATION
  Report Type: Spontaneous
  Country: BR (occurrence: BR)
  Receive Date: 20140627
  Receipt Date: 20140627
  Transmission Date: 20141212
  Serious: Yes (Hospitalization)
  Sender: FDA-Public Use
  Company Number: BR-BRISTOL-MYERS SQUIBB COMPANY-21043856

PATIENT
  Age: 56 Year
  Sex: Female
  Weight: 87 kg

DRUGS (13)
  1. METFORMIN HCL [Suspect]
     Indication: DIABETES MELLITUS
     Route: 048
     Dates: start: 2009
  2. METOPROLOL TARTRATE [Suspect]
     Indication: ARRHYTHMIA
     Route: 048
     Dates: start: 2009
  3. TICAGRELOR [Suspect]
     Indication: MYOCARDIAL INFARCTION
     Route: 048
     Dates: start: 2012
  4. ATORVASTATIN CALCIUM [Concomitant]
     Indication: BLOOD CHOLESTEROL INCREASED
     Route: 048
     Dates: start: 2009
  5. PANTOPRAZOLE [Concomitant]
     Route: 048
     Dates: start: 2009
  6. LOSARTAN POTASSIUM [Concomitant]
     Route: 048
     Dates: start: 2009
  7. AMLODIPINE [Concomitant]
     Route: 048
     Dates: start: 2009
  8. DIAMICRON [Concomitant]
     Route: 048
     Dates: start: 2009
  9. MONOCORDIL [Concomitant]
     Route: 048
     Dates: start: 2009
  10. ZETIA [Concomitant]
     Route: 048
     Dates: start: 2009
  11. OMEGA 3 FATTY ACID [Concomitant]
     Route: 048
     Dates: start: 2009
  12. ASA [Concomitant]
     Route: 048
     Dates: start: 2009
  13. TRYPTANOL [Concomitant]
     Route: 048
     Dates: start: 2009

REACTIONS (2)
  - Macule [Not Recovered/Not Resolved]
  - Coronary artery occlusion [Recovered/Resolved]
